FAERS Safety Report 4552067-8 (Version None)
Quarter: 2004Q4

REPORT INFORMATION
  Report Type: 
  Country: None (occurrence: None)
  Receive Date: 20041217
  Receipt Date: 20041011
  Transmission Date: 20050328
  Serious: No
  Sender: FDA-Public Use
  Company Number: 2004-BP-09865BP

PATIENT
  Age: 64 Year
  Sex: Female

DRUGS (6)
  1. SPIRIVA [Suspect]
     Indication: CHRONIC OBSTRUCTIVE AIRWAYS DISEASE
     Dosage: 18 MCG (18 MCG), IH
     Route: 055
  2. SPIRIVA [Suspect]
  3. FOSAMAX [Concomitant]
  4. MULTIVITAMIN [Concomitant]
  5. AMBIEN [Concomitant]
  6. VAGIFEM [Concomitant]

REACTIONS (2)
  - AGEUSIA [None]
  - INCREASED UPPER AIRWAY SECRETION [None]
